FAERS Safety Report 16513882 (Version 2)
Quarter: 2019Q3

REPORT INFORMATION
  Report Type: Spontaneous
  Country: ES (occurrence: ES)
  Receive Date: 20190702
  Receipt Date: 20190712
  Transmission Date: 20191004
  Serious: Yes (Other)
  Sender: FDA-Public Use
  Company Number: ES-MYLANLABS-2019M1060298

PATIENT
  Age: 29 Year
  Sex: Female

DRUGS (2)
  1. TOPIRAMATE. [Suspect]
     Active Substance: TOPIRAMATE
     Indication: EPILEPSY
     Dosage: 25 MILLIGRAM, QD,INITIAL DOSE 25 MG/24 H FOR 7 DAYS AND 50 MG/DAILY FOR 2 DAYS
     Route: 065
  2. TOPIRAMATE. [Suspect]
     Active Substance: TOPIRAMATE
     Dosage: 50 MILLIGRAM, QD

REACTIONS (5)
  - Retinal disorder [Unknown]
  - Angle closure glaucoma [Unknown]
  - Visual acuity reduced [Recovered/Resolved]
  - Maculopathy [Unknown]
  - Acute myopia [Unknown]
